FAERS Safety Report 8225568-9 (Version None)
Quarter: 2012Q1

REPORT INFORMATION
  Report Type: 
  Country: None (occurrence: None)
  Receive Date: 20120321
  Receipt Date: 20120315
  Transmission Date: 20120608
  Serious: Yes (Hospitalization)
  Sender: FDA-Public Use
  Company Number: PHHO2012PL004338

PATIENT
  Sex: Female
  Weight: 57.6 kg

DRUGS (8)
  1. ECOMER [Concomitant]
     Indication: DECREASED APPETITE
     Dosage: 250 MG
     Route: 048
     Dates: start: 20101019
  2. AFINITOR [Suspect]
     Indication: BREAST CANCER METASTATIC
     Dosage: CODE NOT BROKEN
     Route: 048
     Dates: start: 20101019, end: 20101130
  3. PLACEBO [Suspect]
     Indication: BREAST CANCER METASTATIC
     Dosage: CODE NOT BROKEN
     Route: 048
     Dates: start: 20101019, end: 20101130
  4. FLUOROURACIL [Suspect]
     Indication: BREAST CANCER
     Dosage: 750 MG, 2/MONTH
     Route: 042
     Dates: start: 20101130, end: 20101207
  5. VINORELBINE [Suspect]
     Indication: BREAST CANCER
     Dosage: 35 MG, 4/MONTH
     Route: 042
     Dates: start: 20101130, end: 20101207
  6. EXEMESTANE [Suspect]
     Indication: BREAST CANCER METASTATIC
     Dosage: 25 MG, QD
     Route: 048
     Dates: start: 20101019, end: 20101130
  7. BISOPROLOL FUMARATE [Concomitant]
     Indication: HYPERTENSION
     Dosage: 10 MG, QD
     Route: 048
     Dates: start: 20101019
  8. BLINDED NO TREATMENT RECEIVED [Suspect]
     Indication: BREAST CANCER METASTATIC
     Dosage: CODE NOT BROKEN
     Route: 048
     Dates: start: 20101019, end: 20101130

REACTIONS (3)
  - VOMITING [None]
  - PYREXIA [None]
  - DYSPEPSIA [None]
